FAERS Safety Report 7209023-0 (Version None)
Quarter: 2010Q4

REPORT INFORMATION
  Report Type: 
  Country: None (occurrence: None)
  Receive Date: 20101222
  Receipt Date: 20101213
  Transmission Date: 20110411
  Serious: Yes (Hospitalization)
  Sender: FDA-Public Use
  Company Number: 2010MA005248

PATIENT
  Age: 73 Year
  Sex: Male

DRUGS (13)
  1. FEVERALL [Suspect]
     Dosage: 1 GM;QID
     Route: 054
  2. SIMVASTATIN [Suspect]
     Dosage: 20 MG; PO
     Route: 048
  3. BENDROFLUMETHIAZIDE [Suspect]
     Dosage: 2.5 MG; PO
     Route: 048
  4. OMACOR [Suspect]
     Dosage: 1000 MG; PO
     Route: 048
  5. PIPERACILLIN AND TAZOBACTAM [Suspect]
     Dosage: 4.5 GM;TID
  6. METRONIDAZOLE [Suspect]
  7. OMEPRAZOLE [Suspect]
     Dosage: 40 MG;QD
  8. LANSOPRAZOLE [Suspect]
  9. FELODIPINE [Concomitant]
  10. BECLOMETHASONE DIPROPIONATE [Concomitant]
  11. FLUTICASONE PROPIONATE [Concomitant]
  12. ACETYLSALICYLIC ACID [Concomitant]
  13. CLEXANE [Concomitant]

REACTIONS (2)
  - JAUNDICE [None]
  - LIVER FUNCTION TEST ABNORMAL [None]
